FAERS Safety Report 6245297-0 (Version None)
Quarter: 2009Q2

REPORT INFORMATION
  Report Type: 
  Country: None (occurrence: None)
  Receive Date: 20090623
  Receipt Date: 20090623
  Transmission Date: 20091009
  Serious: Yes (Other)
  Sender: FDA-Public Use
  Company Number: None

PATIENT
  Age: 42 Year
  Sex: Female
  Weight: 77.1115 kg

DRUGS (1)
  1. STRATTERA [Suspect]
     Indication: ATTENTION DEFICIT/HYPERACTIVITY DISORDER
     Dosage: 25 MG CAPSULE ONCE DAILY PO
     Route: 048
     Dates: start: 20090601, end: 20090609

REACTIONS (4)
  - FEELING COLD [None]
  - FOOT FRACTURE [None]
  - HYPOAESTHESIA [None]
  - SENSORY LOSS [None]
